FAERS Safety Report 23177686 (Version 1)
Quarter: 2023Q4

REPORT INFORMATION
  Report Type: Spontaneous
  Country: US (occurrence: None)
  Receive Date: 20231112
  Receipt Date: 20231112
  Transmission Date: 20240110
  Serious: No
  Sender: FDA-Public Use
  Company Number: None

PATIENT
  Age: 31 Year
  Sex: Female
  Weight: 103.5 kg

DRUGS (1)
  1. MOUNJARO [Suspect]
     Active Substance: TIRZEPATIDE
     Indication: Type 2 diabetes mellitus
     Dosage: OTHER FREQUENCY : ONCE A WEEK;?OTHER ROUTE : SUBQ INJECTION TO STOMACH;?
     Route: 050
     Dates: start: 20231028, end: 20231104

REACTIONS (4)
  - Suicidal ideation [None]
  - Insomnia [None]
  - Crying [None]
  - Feeling abnormal [None]

NARRATIVE: CASE EVENT DATE: 20231110
